FAERS Safety Report 18374809 (Version 3)
Quarter: 2022Q1

REPORT INFORMATION
  Report Type: Spontaneous
  Country: CA (occurrence: CA)
  Receive Date: 20201012
  Receipt Date: 20220218
  Transmission Date: 20220424
  Serious: Yes (Other)
  Sender: FDA-Public Use
  Company Number: CA-PURDUE PHARMA-CAN-2020-0011709

PATIENT
  Age: 50 Year
  Sex: Female

DRUGS (34)
  1. MORPHINE SULFATE [Suspect]
     Active Substance: MORPHINE SULFATE
     Indication: Back disorder
     Dosage: UNK
     Route: 065
  2. MORPHINE SULFATE [Suspect]
     Active Substance: MORPHINE SULFATE
     Dosage: UNK
     Route: 065
  3. HYDROCORTISONE VALERATE [Suspect]
     Active Substance: HYDROCORTISONE VALERATE
     Indication: Skin exfoliation
     Dosage: UNK
     Route: 065
  4. HYDROCORTISONE VALERATE [Suspect]
     Active Substance: HYDROCORTISONE VALERATE
     Indication: Rash
     Dosage: UNK
     Route: 065
  5. HYDROCORTISONE VALERATE [Suspect]
     Active Substance: HYDROCORTISONE VALERATE
     Indication: Pruritus
     Dosage: UNK
     Route: 065
  6. HYDROCORTISONE VALERATE [Suspect]
     Active Substance: HYDROCORTISONE VALERATE
     Indication: Eyelid oedema
     Dosage: UNK
     Route: 065
  7. HYDROCORTISONE VALERATE [Suspect]
     Active Substance: HYDROCORTISONE VALERATE
     Indication: Erythema
     Dosage: UNK
     Route: 061
  8. HYDROCORTISONE VALERATE [Suspect]
     Active Substance: HYDROCORTISONE VALERATE
     Dosage: UNK
     Route: 065
  9. HYDROCORTISONE VALERATE [Suspect]
     Active Substance: HYDROCORTISONE VALERATE
     Route: 061
  10. HYDROCORTISONE VALERATE [Suspect]
     Active Substance: HYDROCORTISONE VALERATE
     Route: 065
  11. XOLAIR [Suspect]
     Active Substance: OMALIZUMAB
     Indication: Asthma
     Dosage: 225 MG, 1 EVERY 2 WEEKS
     Route: 058
  12. XOLAIR [Suspect]
     Active Substance: OMALIZUMAB
     Dosage: 225 MG, 1 EVERY 2 WEEKS
     Route: 058
  13. XOLAIR [Suspect]
     Active Substance: OMALIZUMAB
     Dosage: 225 MG, 1 EVERY 2 WEEKS
     Route: 065
  14. XOLAIR [Suspect]
     Active Substance: OMALIZUMAB
     Dosage: 225 MG, 1 EVERY 2 WEEKS
     Route: 065
  15. XOLAIR [Suspect]
     Active Substance: OMALIZUMAB
     Dosage: 225 MG, 1 EVERY 2 WEEKS
     Route: 058
  16. XOLAIR [Suspect]
     Active Substance: OMALIZUMAB
     Dosage: UNK
     Route: 065
  17. XOLAIR [Suspect]
     Active Substance: OMALIZUMAB
     Dosage: 225 MG, 1 EVERY 2 WEEKS
     Route: 065
  18. XOLAIR [Suspect]
     Active Substance: OMALIZUMAB
     Dosage: 225 MG, 1 EVERY 2 WEEKS
     Route: 065
  19. XOLAIR [Suspect]
     Active Substance: OMALIZUMAB
     Dosage: 225G, UNK
     Route: 058
  20. REACTINE                           /00884302/ [Concomitant]
     Indication: Product used for unknown indication
     Dosage: 2 UNK, DAILY
     Route: 048
  21. REACTINE                           /00884302/ [Concomitant]
     Dosage: 2 DF, DAILY
  22. REACTINE                           /00884302/ [Concomitant]
     Dosage: 2 DF, DAILY
  23. REACTINE                           /00884302/ [Concomitant]
     Dosage: UNK
     Route: 065
  24. SPIRIVA [Concomitant]
     Active Substance: TIOTROPIUM BROMIDE MONOHYDRATE
     Indication: Product used for unknown indication
     Dosage: 2 UNK, DAILY
     Route: 048
  25. SPIRIVA [Concomitant]
     Active Substance: TIOTROPIUM BROMIDE MONOHYDRATE
     Dosage: 2 DF, DAILY
  26. SPIRIVA [Concomitant]
     Active Substance: TIOTROPIUM BROMIDE MONOHYDRATE
     Dosage: 2 DF, DAILY
  27. SPIRIVA [Concomitant]
     Active Substance: TIOTROPIUM BROMIDE MONOHYDRATE
     Dosage: UNK
     Route: 065
  28. SYMBICORT [Concomitant]
     Active Substance: BUDESONIDE\FORMOTEROL FUMARATE DIHYDRATE
     Indication: Product used for unknown indication
     Dosage: 2 UNK, TID
     Route: 055
  29. SYMBICORT [Concomitant]
     Active Substance: BUDESONIDE\FORMOTEROL FUMARATE DIHYDRATE
     Dosage: 2 DF, TID
  30. SYMBICORT [Concomitant]
     Active Substance: BUDESONIDE\FORMOTEROL FUMARATE DIHYDRATE
     Dosage: 2 DF, TID
     Route: 055
  31. SYMBICORT [Concomitant]
     Active Substance: BUDESONIDE\FORMOTEROL FUMARATE DIHYDRATE
     Dosage: UNK
     Route: 065
  32. VENTOLIN [Concomitant]
     Active Substance: ALBUTEROL SULFATE
     Indication: Product used for unknown indication
     Dosage: 2 UNK, TID
     Route: 048
  33. VENTOLIN [Concomitant]
     Active Substance: ALBUTEROL SULFATE
     Dosage: 3 DF, TID
     Route: 048
  34. VENTOLIN [Concomitant]
     Active Substance: ALBUTEROL SULFATE
     Dosage: UNK
     Route: 065

REACTIONS (19)
  - Drug hypersensitivity [Not Recovered/Not Resolved]
  - Asthma [Not Recovered/Not Resolved]
  - Back disorder [Not Recovered/Not Resolved]
  - Chest discomfort [Not Recovered/Not Resolved]
  - Dry throat [Not Recovered/Not Resolved]
  - Dysphagia [Not Recovered/Not Resolved]
  - Ear haemorrhage [Not Recovered/Not Resolved]
  - Erythema [Not Recovered/Not Resolved]
  - Eyelid oedema [Not Recovered/Not Resolved]
  - Haemorrhage [Not Recovered/Not Resolved]
  - Immediate post-injection reaction [Not Recovered/Not Resolved]
  - Insomnia [Not Recovered/Not Resolved]
  - Malaise [Not Recovered/Not Resolved]
  - Oropharyngeal spasm [Not Recovered/Not Resolved]
  - Pruritus [Not Recovered/Not Resolved]
  - Rash [Not Recovered/Not Resolved]
  - Skin atrophy [Not Recovered/Not Resolved]
  - Skin exfoliation [Not Recovered/Not Resolved]
  - Wound [Not Recovered/Not Resolved]
